FAERS Safety Report 4965591-0 (Version None)
Quarter: 2006Q1

REPORT INFORMATION
  Report Type: 
  Country: None (occurrence: None)
  Receive Date: 20060201
  Receipt Date: 20051003
  Transmission Date: 20060701
  Serious: No
  Sender: FDA-Public Use
  Company Number: 2005PV003198

PATIENT
  Age: 63 Year
  Sex: Male
  Weight: 208.6546 kg

DRUGS (6)
  1. BYETTA [Suspect]
     Indication: DIABETES MELLITUS NON-INSULIN-DEPENDENT
     Dosage: SEE IMAGE
     Route: 058
     Dates: start: 20050901, end: 20051020
  2. BYETTA [Suspect]
     Indication: DIABETES MELLITUS NON-INSULIN-DEPENDENT
     Dosage: SEE IMAGE
     Route: 058
     Dates: start: 20051021
  3. AMARYL [Concomitant]
  4. METFORMIN [Concomitant]
  5. ACTOS [Concomitant]
  6. BLOOD PRESSURE MEDICATION [Concomitant]

REACTIONS (2)
  - BLOOD GLUCOSE INCREASED [None]
  - DECREASED APPETITE [None]
